FAERS Safety Report 14019290 (Version 1)
Quarter: 2017Q3

REPORT INFORMATION
  Report Type: Spontaneous
  Country: US (occurrence: US)
  Receive Date: 20170928
  Receipt Date: 20170928
  Transmission Date: 20171128
  Serious: No
  Sender: FDA-Public Use
  Company Number: US-BION-006067

PATIENT
  Age: 86 Year
  Sex: Male
  Weight: 67.13 kg

DRUGS (1)
  1. IMODIUM A-D [Suspect]
     Active Substance: LOPERAMIDE HYDROCHLORIDE
     Indication: DIARRHOEA
     Dosage: 2-1 SOFT GELS?2 GELS ON FIRST STOOL AND 1 GEL EACH ON NEXT 2 STOOL. USED 4 SOFT GEL NEXT DAY.
     Route: 048
     Dates: start: 20170220, end: 20170221

REACTIONS (1)
  - Drug ineffective [Not Recovered/Not Resolved]
